FAERS Safety Report 9321696 (Version 2)
Quarter: 2013Q2

REPORT INFORMATION
  Report Type: Spontaneous
  Country: JP (occurrence: None)
  Receive Date: 20130529
  Receipt Date: 20130611
  Transmission Date: 20140414
  Serious: Yes (Hospitalization)
  Sender: FDA-Public Use
  Company Number: JP-20130035

PATIENT
  Sex: Female

DRUGS (2)
  1. LIPIODOL [Suspect]
     Indication: THERAPEUTIC EMBOLISATION
     Route: 013
  2. GELPART (GELATINE) (GELATINE) [Concomitant]
     Route: 013

REACTIONS (2)
  - Liver abscess [None]
  - Off label use [None]
